FAERS Safety Report 6947645-2 (Version None)
Quarter: 2010Q3

REPORT INFORMATION
  Report Type: 
  Country: None (occurrence: None)
  Receive Date: 20100828
  Receipt Date: 20090924
  Transmission Date: 20110219
  Serious: No
  Sender: FDA-Public Use
  Company Number: US-ABBOTT-09P-163-0599511-00

PATIENT
  Sex: Female
  Weight: 90.8 kg

DRUGS (6)
  1. NIASPAN [Suspect]
     Indication: BLOOD CHOLESTEROL INCREASED
     Dates: start: 20090801, end: 20090920
  2. NIASPAN [Suspect]
     Indication: BLOOD TRIGLYCERIDES INCREASED
     Dates: start: 20090924
  3. SYNTHROID [Concomitant]
     Indication: HYPOTHYROIDISM
  4. VITAMIN D [Concomitant]
     Indication: ROUTINE HEALTH MAINTENANCE
  5. CALCIUM [Concomitant]
     Indication: PRODUCT USED FOR UNKNOWN INDICATION
  6. MULTIPLE VITAMINS [Concomitant]
     Indication: ROUTINE HEALTH MAINTENANCE

REACTIONS (2)
  - PRURITUS GENERALISED [None]
  - SKIN BURNING SENSATION [None]
